FAERS Safety Report 7444561-7 (Version None)
Quarter: 2011Q2

REPORT INFORMATION
  Report Type: 
  Country: None (occurrence: None)
  Receive Date: 20110423
  Receipt Date: 20110423
  Transmission Date: 20111010
  Serious: Yes (Other)
  Sender: FDA-Public Use
  Company Number: None

PATIENT
  Sex: Male
  Weight: 16.6 kg

DRUGS (7)
  1. ROCURONIUM BROMIDE [Suspect]
     Indication: ENDOTRACHEAL INTUBATION
     Dosage: 17 MG 2 TIMES IV BOLUS
     Route: 042
     Dates: start: 20110425, end: 20110425
  2. CREATINE [Concomitant]
  3. MITOCHONDRIAL COCKTAIL [Concomitant]
  4. COENZYME Q10 [Concomitant]
  5. LEVOTHYROXINE SODIUM [Concomitant]
  6. ERYTHROMYCIN [Concomitant]
  7. LEVOCARNITINE [Concomitant]

REACTIONS (2)
  - ENDOTRACHEAL INTUBATION COMPLICATION [None]
  - DRUG INEFFECTIVE [None]
